FAERS Safety Report 19206501 (Version 1)
Quarter: 2021Q2

REPORT INFORMATION
  Report Type: Report from Study
  Country: None (occurrence: BR)
  Receive Date: 20210503
  Receipt Date: 20210503
  Transmission Date: 20210717
  Serious: Yes (Disabling)
  Sender: FDA-Public Use
  Company Number: BR-ABBVIE-21K-020-3882101-00

PATIENT
  Age: 49 Year
  Sex: Male
  Weight: 94 kg

DRUGS (2)
  1. METHOTREXATE. [Concomitant]
     Active Substance: METHOTREXATE
     Indication: PSORIATIC ARTHROPATHY
  2. HUMIRA [Suspect]
     Active Substance: ADALIMUMAB
     Indication: PSORIATIC ARTHROPATHY
     Route: 058
     Dates: start: 20181206

REACTIONS (6)
  - Joint range of motion decreased [Unknown]
  - Skin discolouration [Recovering/Resolving]
  - Blister [Recovering/Resolving]
  - Burning sensation [Recovering/Resolving]
  - Erythema [Recovering/Resolving]
  - Thrombosis [Unknown]

NARRATIVE: CASE EVENT DATE: 202104
